FAERS Safety Report 5673683 (Version 4)
Quarter: 2020Q1

REPORT INFORMATION
  Report Type: Report from Study
  Country: US (occurrence: US)
  Receive Date: 20041116
  Receipt Date: 20200326
  Transmission Date: 20200409
  Serious: Yes (Death)
  Sender: FDA-Public Use
  Company Number: US-JNJFOC-20041103110

PATIENT
  Age: 46 Year
  Sex: Female
  Weight: 45.4 kg

DRUGS (6)
  1. MIRALAX [Concomitant]
     Active Substance: POLYETHYLENE GLYCOL 3350
     Indication: FREQUENT BOWEL MOVEMENTS
     Dosage: 4 SCOOPS/DAY
  2. NEXIUM [Concomitant]
     Active Substance: ESOMEPRAZOLE MAGNESIUM
     Indication: GASTROOESOPHAGEAL REFLUX DISEASE
     Route: 048
     Dates: start: 20030120
  3. PAMIDRONATE [Concomitant]
     Active Substance: PAMIDRONATE DISODIUM
     Indication: OSTEOPOROSIS
     Route: 042
  4. CISAPRIDE [Suspect]
     Active Substance: CISAPRIDE
     Indication: GASTROOESOPHAGEAL REFLUX DISEASE
     Route: 048
     Dates: start: 20001214
  5. CISAPRIDE [Suspect]
     Active Substance: CISAPRIDE
     Dosage: DISCONTINUED  PRE-TRIAL
     Route: 048
     Dates: end: 20001212
  6. CYCLOSPORINE. [Concomitant]
     Active Substance: CYCLOSPORINE
     Indication: SJOGREN^S SYNDROME
     Dosage: 0.5% SOLUTION, WITH TREATMENT TO BOTH EYES
     Route: 014

REACTIONS (1)
  - Sjogren^s syndrome [Fatal]

NARRATIVE: CASE EVENT DATE: 20041026
